FAERS Safety Report 7687085-4 (Version None)
Quarter: 2011Q3

REPORT INFORMATION
  Report Type: 
  Country: None (occurrence: None)
  Receive Date: 20110816
  Receipt Date: 20110614
  Transmission Date: 20111222
  Serious: No
  Sender: FDA-Public Use
  Company Number: US-B.I. PHARMACEUTICALS,INC./RIDGEFIELD-2010-BP-06330BP

PATIENT
  Sex: Male
  Weight: 109.32 kg

DRUGS (1)
  1. MIRAPEX [Suspect]
     Indication: PARKINSON'S DISEASE
     Route: 048
     Dates: start: 20050616, end: 20091207

REACTIONS (17)
  - DYSPEPSIA [None]
  - INSOMNIA [None]
  - PATHOLOGICAL GAMBLING [None]
  - COMPULSIVE SHOPPING [None]
  - HYPERSEXUALITY [None]
  - ABDOMINAL DISCOMFORT [None]
  - ARTHRALGIA [None]
  - JOINT SWELLING [None]
  - OBSESSIVE-COMPULSIVE DISORDER [None]
  - EMOTIONAL DISTRESS [None]
  - IRRITABLE BOWEL SYNDROME [None]
  - EYE DISORDER [None]
  - MUSCLE TIGHTNESS [None]
  - GAIT DISTURBANCE [None]
  - OEDEMA PERIPHERAL [None]
  - SOMNOLENCE [None]
  - PAIN [None]
